FAERS Safety Report 23331688 (Version 1)
Quarter: 2023Q4

REPORT INFORMATION
  Report Type: Spontaneous
  Country: HN (occurrence: HN)
  Receive Date: 20231222
  Receipt Date: 20231222
  Transmission Date: 20240109
  Serious: Yes (Other)
  Sender: FDA-Public Use
  Company Number: HN-NOVOPROD-1151454

PATIENT
  Age: 38 Year
  Sex: Female
  Weight: 87 kg

DRUGS (5)
  1. OZEMPIC [Suspect]
     Active Substance: SEMAGLUTIDE
     Indication: Glucose tolerance impaired
     Dosage: 0.5 MG, QW
     Route: 058
     Dates: start: 202305
  2. OZEMPIC [Suspect]
     Active Substance: SEMAGLUTIDE
     Dosage: UNK (RESUMED)
     Route: 058
  3. VITAMIN E [Concomitant]
     Active Substance: .ALPHA.-TOCOPHEROL
     Dosage: 1000 IU, QD
     Route: 048
     Dates: start: 202305
  4. CHOLECALCIFEROL [Concomitant]
     Active Substance: CHOLECALCIFEROL
     Dosage: 1 TABLET PER MONTH
     Route: 048
  5. DIABION [ASCORBIC ACID;COPPER SULFATE;CYANOCOBALAMIN;FERROUS GLUCONATE [Concomitant]
     Indication: Multi-vitamin deficiency
     Dosage: 1 TABLET QD
     Route: 048
     Dates: start: 202305

REACTIONS (4)
  - Uterine leiomyoma [Recovered/Resolved]
  - Constipation [Not Recovered/Not Resolved]
  - Thyroid mass [Not Recovered/Not Resolved]
  - Product use in unapproved indication [Unknown]

NARRATIVE: CASE EVENT DATE: 20230501
